FAERS Safety Report 23903495 (Version 2)
Quarter: 2024Q2

REPORT INFORMATION
  Report Type: Report from Study
  Country: US (occurrence: US)
  Receive Date: 20240527
  Receipt Date: 20240617
  Transmission Date: 20240716
  Serious: Yes (Other)
  Sender: FDA-Public Use
  Company Number: US-AMGEN-USASL2024082771

PATIENT
  Age: 44 Year
  Sex: Female

DRUGS (1)
  1. NPLATE [Suspect]
     Active Substance: ROMIPLOSTIM
     Indication: Product used for unknown indication
     Dosage: 250 MICROGRAM, 0.5 ML (500 MCG/ML) SINGLE-USE VIAL
     Route: 065

REACTIONS (4)
  - Syncope [Unknown]
  - Dizziness [Recovering/Resolving]
  - Hypotension [Unknown]
  - Sinus headache [Not Recovered/Not Resolved]
